FAERS Safety Report 5336297-3 (Version None)
Quarter: 2007Q2

REPORT INFORMATION
  Report Type: 
  Country: None (occurrence: None)
  Receive Date: 20070522
  Receipt Date: 20070515
  Transmission Date: 20071010
  Serious: Yes (Hospitalization)
  Sender: FDA-Public Use
  Company Number: OXER20070017

PATIENT
  Age: 58 Year
  Sex: Female
  Weight: 63.9572 kg

DRUGS (2)
  1. OXYCODONE HCL [Suspect]
     Indication: PAIN IN EXTREMITY
     Dosage: 1 TAB BID, PER ORAL
     Route: 048
     Dates: start: 20070101, end: 20070423
  2. ROXICET [Suspect]
     Indication: BREAKTHROUGH PAIN
     Dosage: 1/2 1 TAB PRN, PER ORAL
     Route: 048
     Dates: end: 20070425

REACTIONS (12)
  - ABDOMINAL PAIN [None]
  - BACK PAIN [None]
  - CONSTIPATION [None]
  - DIZZINESS [None]
  - DRUG INEFFECTIVE [None]
  - DRUG WITHDRAWAL SYNDROME [None]
  - DRY MOUTH [None]
  - DYSGEUSIA [None]
  - GASTROINTESTINAL ULCER [None]
  - PHARMACEUTICAL PRODUCT COMPLAINT [None]
  - SOMNOLENCE [None]
  - WEIGHT DECREASED [None]
